FAERS Safety Report 9062715 (Version 1)
Quarter: 2013Q1

REPORT INFORMATION
  Report Type: Report from Study
  Country: US (occurrence: US)
  Receive Date: 20130129
  Receipt Date: 20130129
  Transmission Date: 20140127
  Serious: No
  Sender: FDA-Public Use
  Company Number: US-ABBOTT-12P-163-0945951-00

PATIENT
  Age: 61 Year
  Sex: Female

DRUGS (9)
  1. HUMIRA 40 MG/0.8 ML PEN [Suspect]
     Indication: RHEUMATOID ARTHRITIS
     Dates: start: 20120416
  2. HYDROCHLOROTHIAZIDE [Concomitant]
     Indication: DIURETIC THERAPY
     Dosage: 12.5MG DAILY
     Route: 048
  3. CELEBREX [Concomitant]
     Indication: RHEUMATOID ARTHRITIS
     Route: 048
  4. METHOTREXATE [Concomitant]
     Indication: RHEUMATOID ARTHRITIS
  5. BENICAR [Concomitant]
     Indication: HYPERTENSION
     Dosage: 40MG DAILY
     Route: 048
  6. CORTISONE [Concomitant]
     Indication: EYE INFLAMMATION
     Dosage: 4 DROPS IN RIGHT EYE 2 DROPS IN LEFT EYE
  7. OMEPRAZOLE [Concomitant]
     Indication: GASTROOESOPHAGEAL REFLUX DISEASE
     Dosage: 20MG DAILY
     Route: 048
  8. PROAIR HFA [Concomitant]
     Indication: ASTHMA
     Dosage: 2 PUFFS DAILY
     Route: 055
  9. FLOVENT [Concomitant]
     Indication: ASTHMA
     Dosage: 2 PUFFS DAILY
     Route: 055

REACTIONS (4)
  - Injection site swelling [Not Recovered/Not Resolved]
  - Injection site pruritus [Not Recovered/Not Resolved]
  - Injection site erythema [Not Recovered/Not Resolved]
  - Injection site reaction [Not Recovered/Not Resolved]
